FAERS Safety Report 10159346 (Version 1)
Quarter: 2014Q2

REPORT INFORMATION
  Report Type: Report from Study
  Country: US (occurrence: US)
  Receive Date: 20140508
  Receipt Date: 20140508
  Transmission Date: 20141212
  Serious: Yes (Other)
  Sender: FDA-Public Use
  Company Number: US-ROCHE-1397020

PATIENT
  Sex: 0

DRUGS (6)
  1. RITUXIMAB [Suspect]
     Indication: IMMUNE TOLERANCE INDUCTION
     Route: 065
  2. MYCOPHENOLATE MOFETIL [Suspect]
     Indication: PROPHYLAXIS AGAINST TRANSPLANT REJECTION
     Dosage: 500 MG TWICE DAILY IF INDUCTION THERAPY WAS ATG/ALEMTUZUMAB AND 1000 MG DAILY IF THERAPY WITH ANTI I
     Route: 065
  3. TACROLIMUS [Suspect]
     Indication: PROPHYLAXIS AGAINST TRANSPLANT REJECTION
     Route: 065
  4. PREDNISONE [Suspect]
     Indication: PROPHYLAXIS AGAINST TRANSPLANT REJECTION
     Route: 065
  5. PREDNISONE [Suspect]
     Dosage: FOR 4 WEEKS
     Route: 065
  6. GLOBULIN, IMMUNE [Concomitant]
     Indication: IMMUNE TOLERANCE INDUCTION
     Dosage: 2 G/KG MAX 140 G
     Route: 042

REACTIONS (3)
  - Polyomavirus-associated nephropathy [Unknown]
  - Graft loss [Unknown]
  - Viraemia [Unknown]
